FAERS Safety Report 23949656 (Version 1)
Quarter: 2024Q2

REPORT INFORMATION
  Report Type: Other
  Country: US (occurrence: None)
  Receive Date: 20240607
  Receipt Date: 20240607
  Transmission Date: 20240715
  Serious: No
  Sender: FDA-Public Use
  Company Number: US-ROCHE-3576475

PATIENT
  Age: 40 Year
  Sex: Female
  Weight: 89.438 kg

DRUGS (1)
  1. OCREVUS [Suspect]
     Active Substance: OCRELIZUMAB
     Indication: Multiple sclerosis
     Dosage: PRESCRIBED DOSE (INTRAVENOUS,300MG , ONCE IN 14 DAY)
     Route: 065

REACTIONS (3)
  - Illness [Unknown]
  - COVID-19 [Unknown]
  - Fall [Unknown]
